FAERS Safety Report 24832299 (Version 1)
Quarter: 2025Q1

REPORT INFORMATION
  Report Type: Spontaneous
  Country: CH (occurrence: CH)
  Receive Date: 20250110
  Receipt Date: 20250110
  Transmission Date: 20250409
  Serious: Yes (Disabling)
  Sender: EISAI
  Company Number: CH-Eisai-EC-2025-182031

PATIENT
  Age: 61 Year
  Sex: Male
  Weight: 101 kg

DRUGS (2)
  1. LENVATINIB [Suspect]
     Active Substance: LENVATINIB
     Indication: Clear cell renal cell carcinoma
     Route: 048
     Dates: end: 2024
  2. AFINITOR [Suspect]
     Active Substance: EVEROLIMUS
     Indication: Clear cell renal cell carcinoma
     Dates: end: 2024

REACTIONS (1)
  - Mucosal toxicity [Recovered/Resolved]

NARRATIVE: CASE EVENT DATE: 20240412
